FAERS Safety Report 7955455-2 (Version None)
Quarter: 2011Q4

REPORT INFORMATION
  Report Type: 
  Country: None (occurrence: None)
  Receive Date: 20111202
  Receipt Date: 20111121
  Transmission Date: 20120403
  Serious: Yes (Other)
  Sender: FDA-Public Use
  Company Number: CA-ROCHE-1015204

PATIENT
  Sex: Female

DRUGS (1)
  1. XOLAIR [Suspect]
     Indication: ASTHMA
     Dates: start: 20060104

REACTIONS (9)
  - PHARYNGEAL OEDEMA [None]
  - PYREXIA [None]
  - OROPHARYNGEAL PAIN [None]
  - HEADACHE [None]
  - FUNGAL INFECTION [None]
  - SWOLLEN TONGUE [None]
  - COUGH [None]
  - MIGRAINE [None]
  - DYSPHAGIA [None]
